FAERS Safety Report 7436744-7 (Version None)
Quarter: 2011Q2

REPORT INFORMATION
  Report Type: 
  Country: None (occurrence: None)
  Receive Date: 20110426
  Receipt Date: 20110415
  Transmission Date: 20111010
  Serious: Yes (Other)
  Sender: FDA-Public Use
  Company Number: CA-ELI_LILLY_AND_COMPANY-CA201104004549

PATIENT
  Sex: Male
  Weight: 122.7 kg

DRUGS (12)
  1. ZYPREXA [Suspect]
     Dosage: 2.5 MG, EACH EVENING
  2. ZYPREXA ZYDIS [Suspect]
     Indication: SCHIZOPHRENIA
     Dosage: 5 MG, EACH EVENING
  3. DEPAKOTE [Concomitant]
  4. ZYPREXA [Suspect]
     Indication: SCHIZOPHRENIA
     Dosage: 10 MG, EACH EVENING
     Dates: start: 20000801
  5. ZYPREXA ZYDIS [Suspect]
     Dosage: 25 MG, EACH EVENING
  6. ZYPREXA ZYDIS [Suspect]
     Dosage: 30 MG, EACH EVENING
  7. ZUCLOPENTHIXOL [Concomitant]
  8. ZYPREXA [Suspect]
     Dosage: 22.5 MG, EACH EVENING
  9. ZYPREXA [Suspect]
     Dosage: 5 MG, EACH EVENING
  10. AMANTADINE HCL [Concomitant]
  11. BENZTROPINE [Concomitant]
  12. FLUPENTHIXOL [Concomitant]

REACTIONS (7)
  - WEIGHT INCREASED [None]
  - GAMMA-GLUTAMYLTRANSFERASE INCREASED [None]
  - HYPERCHOLESTEROLAEMIA [None]
  - DIABETES MELLITUS [None]
  - BLOOD TRIGLYCERIDES INCREASED [None]
  - OVERDOSE [None]
  - HEPATIC STEATOSIS [None]
